FAERS Safety Report 7333237-2 (Version None)
Quarter: 2011Q1

REPORT INFORMATION
  Report Type: 
  Country: None (occurrence: None)
  Receive Date: 20110304
  Receipt Date: 20110224
  Transmission Date: 20110831
  Serious: Yes (Other)
  Sender: FDA-Public Use
  Company Number: US-CEPHALON-2010002794

PATIENT
  Sex: Male

DRUGS (9)
  1. BUPROPION HCL [Concomitant]
     Indication: DEPRESSION
  2. GABAPENTIN [Concomitant]
     Indication: PAIN
     Dates: start: 20050401
  3. FENTANYL CITRATE [Suspect]
     Indication: LUMBAR RADICULOPATHY
  4. SERTRALINE HYDROCHLORIDE [Concomitant]
     Indication: DEPRESSION
     Dates: start: 20050101
  5. GABAPENTIN [Concomitant]
     Indication: ANXIETY
  6. MORPHINE SULFATE [Concomitant]
     Indication: PAIN
     Dates: start: 20080101
  7. BUSPIRONE [Concomitant]
     Indication: ANXIETY
     Dates: start: 20050401
  8. CRESTOR [Concomitant]
     Indication: BLOOD CHOLESTEROL
     Dates: start: 20080101
  9. FENTANYL CITRATE [Suspect]
     Indication: CERVICOBRACHIAL SYNDROME
     Route: 002
     Dates: start: 20050101

REACTIONS (7)
  - DRUG ADMINISTRATION ERROR [None]
  - DRY MOUTH [None]
  - DENTAL CARIES [None]
  - DRUG INEFFECTIVE FOR UNAPPROVED INDICATION [None]
  - DIABETES MELLITUS [None]
  - ORAL DISORDER [None]
  - DRUG PRESCRIBING ERROR [None]
